FAERS Safety Report 18806506 (Version 2)
Quarter: 2021Q1

REPORT INFORMATION
  Report Type: Spontaneous
  Country: US (occurrence: US)
  Receive Date: 20210129
  Receipt Date: 20210203
  Transmission Date: 20210419
  Serious: Yes (Life-Threatening, Hospitalization, Other)
  Sender: FDA-Public Use
  Company Number: US-AUROBINDO-AUR-APL-2021-003192

PATIENT
  Age: 21 Year
  Sex: Female

DRUGS (2)
  1. LAMOTRIGINE. [Suspect]
     Active Substance: LAMOTRIGINE
     Indication: PRODUCT USED FOR UNKNOWN INDICATION
     Dosage: UNK
     Route: 048
  2. ETHOSUXIMIDE. [Suspect]
     Active Substance: ETHOSUXIMIDE
     Indication: PRODUCT USED FOR UNKNOWN INDICATION
     Dosage: UNK
     Route: 048

REACTIONS (9)
  - Neurotoxicity [Recovering/Resolving]
  - Hyperhidrosis [Recovered/Resolved]
  - Coma [Recovered/Resolved]
  - Mental status changes [Recovered/Resolved]
  - Psychomotor hyperactivity [Recovered/Resolved]
  - Intentional overdose [Recovering/Resolving]
  - Tachycardia [Recovered/Resolved]
  - Toxicity to various agents [Recovering/Resolving]
  - Muscle rigidity [Recovered/Resolved]
